FAERS Safety Report 22881885 (Version 2)
Quarter: 2024Q2

REPORT INFORMATION
  Report Type: Report from Study
  Country: IN (occurrence: IN)
  Receive Date: 20230830
  Receipt Date: 20240621
  Transmission Date: 20240715
  Serious: Yes (Death)
  Sender: FDA-Public Use
  Company Number: IN-ROCHE-3383180

PATIENT
  Age: 64 Year
  Sex: Male

DRUGS (1)
  1. TECENTRIQ [Suspect]
     Active Substance: ATEZOLIZUMAB
     Indication: Hepatocellular carcinoma
     Dosage: ONGOING NO
     Route: 041
     Dates: start: 20220623, end: 20230708

REACTIONS (5)
  - Vomiting [Unknown]
  - Decreased appetite [Unknown]
  - Cough [Unknown]
  - Abdominal discomfort [Unknown]
  - Disease progression [Fatal]
